FAERS Safety Report 8160129 (Version 2)
Quarter: 2012Q4

REPORT INFORMATION
  Report Type: 
  Country: US (occurrence: US)
  Receive Date: 20110928
  Receipt Date: 20121212
  Transmission Date: 20130627
  Serious: Yes (Hospitalization)
  Sender: FDA-Public Use
  Company Number: US-GLAXOSMITHKLINE-A0922167A

PATIENT
  Sex: Female
  Weight: 179.1 kg

DRUGS (1)
  1. AVANDIA [Suspect]
     Indication: DIABETES MELLITUS
     Dosage: 4MG Per day
     Route: 048

REACTIONS (2)
  - Palpitations [Not Recovered/Not Resolved]
  - Cardiac failure congestive [Unknown]
